FAERS Safety Report 15530579 (Version 1)
Quarter: 2018Q4

REPORT INFORMATION
  Report Type: Spontaneous
  Country: US (occurrence: US)
  Receive Date: 20181018
  Receipt Date: 20181018
  Transmission Date: 20190205
  Serious: No
  Sender: FDA-Public Use
  Company Number: US-PFIZER INC-2018419570

PATIENT
  Age: 15 Year
  Sex: Female

DRUGS (1)
  1. PROVERA [Suspect]
     Active Substance: MEDROXYPROGESTERONE ACETATE
     Dosage: 10 MG, DAILY

REACTIONS (4)
  - Vaginal haemorrhage [Unknown]
  - Agitation [Unknown]
  - Back pain [Unknown]
  - Diarrhoea [Unknown]
